FAERS Safety Report 9018736 (Version 1)
Quarter: 2013Q1

REPORT INFORMATION
  Report Type: Spontaneous
  Country: US (occurrence: US)
  Receive Date: 20130118
  Receipt Date: 20130118
  Transmission Date: 20140127
  Serious: No
  Sender: FDA-Public Use
  Company Number: US-PFIZER INC-2013022405

PATIENT
  Age: 56 Year
  Sex: Female

DRUGS (6)
  1. ZOLOFT [Suspect]
     Indication: DEPRESSION
     Dosage: 25 MG, DAILY
  2. ZOLOFT [Suspect]
     Dosage: 200 MG, DAILY
  3. ZOLOFT [Suspect]
     Dosage: 50 MG, DAILY
  4. ZOLOFT [Suspect]
     Dosage: UNK, DAILY
  5. ZOLOFT [Suspect]
     Dosage: 50 MG, DAILY
  6. NORVASC [Concomitant]
     Indication: HYPERTENSION
     Dosage: 5 MG, DAILY

REACTIONS (3)
  - Hypersensitivity [Not Recovered/Not Resolved]
  - Pruritus [Not Recovered/Not Resolved]
  - Urticaria [Unknown]
